FAERS Safety Report 16929072 (Version 8)
Quarter: 2020Q1

REPORT INFORMATION
  Report Type: Report from Study
  Country: DE (occurrence: DE)
  Receive Date: 20191017
  Receipt Date: 20200318
  Transmission Date: 20200409
  Serious: Yes (Hospitalization)
  Sender: FDA-Public Use
  Company Number: DE-ROCHE-2435645

PATIENT
  Age: 69 Year
  Sex: Female
  Weight: 78.5 kg

DRUGS (26)
  1. DULOXETINE. [Concomitant]
     Active Substance: DULOXETINE
     Route: 048
     Dates: start: 20190927
  2. PIRITRAMIDE [Concomitant]
     Active Substance: PIRITRAMIDE
     Indication: ABDOMINAL PAIN LOWER
     Route: 058
     Dates: start: 20191219, end: 20191222
  3. FENTANYL. [Concomitant]
     Active Substance: FENTANYL
     Indication: ABDOMINAL PAIN LOWER
     Route: 062
     Dates: start: 20191117
  4. BUDESONIDE. [Concomitant]
     Active Substance: BUDESONIDE
     Dosage: 0.2 INHALATION EVERY DAY
     Route: 065
  5. CARBOPLATIN. [Suspect]
     Active Substance: CARBOPLATIN
     Indication: MALIGNANT NEOPLASM OF UNKNOWN PRIMARY SITE
     Dosage: DOSE OF LAST INDUCTION STUDY DRUG 2 ADMINISTERED PRIOR TO SERIOUS ADVERSE EVENT ONSET: 300 MG?DATE O
     Route: 042
     Dates: start: 20190509
  6. TRIMIPRAMINE [Concomitant]
     Active Substance: TRIMIPRAMINE
     Route: 048
     Dates: start: 20190401, end: 20190401
  7. PANTOPRAZOLE [Concomitant]
     Active Substance: PANTOPRAZOLE
     Dosage: EVERY DAY
     Route: 042
     Dates: start: 20190912, end: 20190912
  8. ONDANSETRON [Concomitant]
     Active Substance: ONDANSETRON
     Dosage: EVERY DAY
     Route: 048
     Dates: start: 20190913
  9. THIAMAZOL [Concomitant]
     Active Substance: METHIMAZOLE
     Dosage: EVERY DAY
     Route: 048
  10. METOCLOPRAMID [METOCLOPRAMIDE] [Concomitant]
     Active Substance: METOCLOPRAMIDE
     Dosage: DOSE: 1 EVERY DAY. SUBSEQUENT DOSE ON 13/SEP/2019
     Route: 042
     Dates: start: 20190912, end: 20190912
  11. HYDROMORPHONE [Concomitant]
     Active Substance: HYDROMORPHONE
     Indication: ABDOMINAL PAIN LOWER
     Route: 048
     Dates: start: 20191007, end: 20191119
  12. LASIX [Concomitant]
     Active Substance: FUROSEMIDE
     Route: 042
     Dates: start: 20191226
  13. NOVALGIN (METAMIZOLE SODIUM) [Concomitant]
     Active Substance: METAMIZOLE SODIUM
     Dosage: AS NEEDED
     Route: 048
     Dates: start: 20190715
  14. ENOXAPARIN [Concomitant]
     Active Substance: ENOXAPARIN
     Route: 058
     Dates: start: 20190927, end: 20190929
  15. BISOPROLOL [Concomitant]
     Active Substance: BISOPROLOL
     Indication: TACHYCARDIA
     Dosage: SUBSEQUENT DOSE ON 15/DEC/2019
     Route: 048
     Dates: start: 20191214, end: 20191214
  16. ATEZOLIZUMAB. [Suspect]
     Active Substance: ATEZOLIZUMAB
     Indication: MALIGNANT NEOPLASM OF UNKNOWN PRIMARY SITE
     Dosage: DOSE OF LAST DOSE OF TREATMENT STUDY DRUG 1 PRIOR TO SERIOUS ADVERSE EVENT ONSET: 1200 MG ?DATE OF L
     Route: 042
     Dates: start: 20190826
  17. ENOXAPARIN [Concomitant]
     Active Substance: ENOXAPARIN
     Indication: PROPHYLAXIS
     Dosage: 4000 IU
     Route: 058
     Dates: start: 20191212
  18. JONOSTERIL [CALCIUM ACETATE;MAGNESIUM ACETATE;POTASSIUM ACETATE;SODIUM [Concomitant]
     Indication: NAUSEA
     Route: 042
     Dates: start: 20191213
  19. LAXANS [BISACODYL] [Concomitant]
     Indication: CONSTIPATION
     Route: 048
     Dates: start: 20190620
  20. PACLITAXEL. [Suspect]
     Active Substance: PACLITAXEL
     Indication: MALIGNANT NEOPLASM OF UNKNOWN PRIMARY SITE
     Dosage: DOSE OF LAST INDUCTION STUDY DRUG 2 ADMINISTERED PRIOR TO SERIOUS ADVERSE EVENT ONSET: 300 MG?DATE O
     Route: 042
     Dates: start: 20190509
  21. CYMBALTA [Concomitant]
     Active Substance: DULOXETINE HYDROCHLORIDE
     Dosage: EVERY DAY
     Route: 048
  22. CEFTAZIDIM [Concomitant]
     Active Substance: CEFTAZIDIME
     Route: 042
     Dates: start: 20190928, end: 20190929
  23. MACROGOL [Concomitant]
     Active Substance: POLYETHYLENE GLYCOLS
     Dosage: 2
     Route: 048
     Dates: start: 20190928, end: 20190930
  24. TOREM [TORASEMIDE] [Concomitant]
     Active Substance: TORSEMIDE
     Route: 065
     Dates: start: 20191225, end: 20191225
  25. THIAMAZOLE [Concomitant]
     Active Substance: METHIMAZOLE
     Route: 065
  26. METAMIZOLE [Concomitant]
     Active Substance: METAMIZOLE
     Route: 065

REACTIONS (1)
  - Metastases to bladder [Recovered/Resolved]

NARRATIVE: CASE EVENT DATE: 20190927
